FAERS Safety Report 10929697 (Version 1)
Quarter: 2015Q1

REPORT INFORMATION
  Report Type: Spontaneous
  Country: US (occurrence: None)
  Receive Date: 20150318
  Receipt Date: 20150318
  Transmission Date: 20150721
  Serious: Yes (Disabling)
  Sender: FDA-Public Use
  Company Number: None

PATIENT
  Age: 46 Year
  Sex: Female
  Weight: 61.24 kg

DRUGS (15)
  1. AMICAR [Concomitant]
     Active Substance: AMINOCAPROIC ACID
  2. CLONAZEPAM. [Concomitant]
     Active Substance: CLONAZEPAM
  3. CYMBALTA [Suspect]
     Active Substance: DULOXETINE HYDROCHLORIDE
     Indication: ANXIETY
     Dosage: 1 TAKEN BY MOUTH
     Route: 048
  4. GABAPENTIN. [Concomitant]
     Active Substance: GABAPENTIN
  5. CRAMBERRY [Concomitant]
  6. CYMBALTA [Suspect]
     Active Substance: DULOXETINE HYDROCHLORIDE
     Indication: DEPRESSION
     Dosage: 1 TAKEN BY MOUTH
     Route: 048
  7. CYMBALTA [Suspect]
     Active Substance: DULOXETINE HYDROCHLORIDE
     Indication: POST-TRAUMATIC STRESS DISORDER
     Dosage: 1 TAKEN BY MOUTH
     Route: 048
  8. BAXTRIM [Concomitant]
  9. CYMBALTA [Suspect]
     Active Substance: DULOXETINE HYDROCHLORIDE
     Indication: MENTAL DISORDER
     Dosage: 1 TAKEN BY MOUTH
     Route: 048
  10. XANAX [Concomitant]
     Active Substance: ALPRAZOLAM
  11. VITAMIN D [Concomitant]
     Active Substance: CHOLECALCIFEROL
  12. PROBIOTIC [Concomitant]
     Active Substance: PROBIOTICS NOS
  13. CEPHANAXIN [Concomitant]
  14. BUTRANS [Concomitant]
     Active Substance: BUPRENORPHINE
  15. ESTRADIOL. [Concomitant]
     Active Substance: ESTRADIOL

REACTIONS (16)
  - Ehlers-Danlos syndrome [None]
  - Speech disorder [None]
  - Confusional state [None]
  - Hypoglycaemia [None]
  - Seizure [None]
  - Dyskinesia [None]
  - Influenza [None]
  - Fibromyalgia [None]
  - Depression [None]
  - Arthralgia [None]
  - Tremor [None]
  - Loss of employment [None]
  - Anxiety [None]
  - Agitation [None]
  - Anger [None]
  - Depressed mood [None]

NARRATIVE: CASE EVENT DATE: 20080303
